FAERS Safety Report 9653285 (Version 1)
Quarter: 2013Q4

REPORT INFORMATION
  Report Type: Spontaneous
  Country: SA (occurrence: SA)
  Receive Date: 20131029
  Receipt Date: 20131029
  Transmission Date: 20140711
  Serious: Yes (Hospitalization)
  Sender: FDA-Public Use
  Company Number: PHHY2013SA118558

PATIENT
  Age: 19 Year
  Sex: Male
  Weight: 99 kg

DRUGS (2)
  1. METFORMIN [Suspect]
     Indication: TYPE 2 DIABETES MELLITUS
     Dosage: 1 G, BID
  2. METFORMIN [Suspect]

REACTIONS (12)
  - Pancreatitis acute [Recovering/Resolving]
  - Nausea [Recovering/Resolving]
  - Vomiting [Recovering/Resolving]
  - Abdominal pain upper [Recovering/Resolving]
  - Dehydration [Recovering/Resolving]
  - Abdominal tenderness [Recovering/Resolving]
  - Amylase increased [Recovering/Resolving]
  - Lipase increased [Recovering/Resolving]
  - C-reactive protein increased [Recovering/Resolving]
  - Glycosylated haemoglobin increased [Unknown]
  - Blood creatinine increased [Unknown]
  - White blood cell count increased [Unknown]
